FAERS Safety Report 20521415 (Version 1)
Quarter: 2022Q1

REPORT INFORMATION
  Report Type: Spontaneous
  Country: CA (occurrence: CA)
  Receive Date: 20220226
  Receipt Date: 20220226
  Transmission Date: 20220423
  Serious: Yes (Other)
  Sender: FDA-Public Use
  Company Number: None

PATIENT
  Age: 45 Year
  Sex: Female

DRUGS (19)
  1. METHOTREXATE [Suspect]
     Active Substance: METHOTREXATE
     Indication: Product used for unknown indication
     Dosage: 1 EVERY 1 WEEKS
     Route: 065
  2. RITUXIMAB [Concomitant]
     Active Substance: RITUXIMAB
     Dosage: 1 EVERY 1 WEEKS
     Route: 058
  3. HUMIRA [Concomitant]
     Active Substance: ADALIMUMAB
     Dosage: SOLUTION SUBCUTANEOUS
  4. HYDROXYCHLOROQUINE [Concomitant]
     Active Substance: HYDROXYCHLOROQUINE
  5. INFLIXIMAB [Concomitant]
     Active Substance: INFLIXIMAB
     Indication: Rheumatoid arthritis
  6. LEFLUNOMIDE [Concomitant]
     Active Substance: LEFLUNOMIDE
     Dosage: EVERY 1 DAYS
  7. ABATACEPT [Concomitant]
     Active Substance: ABATACEPT
     Dosage: 1 EVERY 1 MONTHS
     Route: 042
  8. RITUXIMAB [Concomitant]
     Active Substance: RITUXIMAB
  9. SIMPONI [Concomitant]
     Active Substance: GOLIMUMAB
     Dosage: SOLUTION SUBCUTANEOUS, 1 EVERY 1 MONTHS
  10. SULFASALAZINE [Concomitant]
     Active Substance: SULFASALAZINE
     Dosage: EVERY 1 DAYS
  11. TOFACITINIB [Concomitant]
     Active Substance: TOFACITINIB
     Dosage: 2 EVERY 1 DAYS
  12. BILASTINE [Concomitant]
     Active Substance: BILASTINE
     Indication: Product used for unknown indication
     Dosage: 1 EVERY 1 DAYS
     Route: 065
  13. ETANERCEPT [Suspect]
     Active Substance: ETANERCEPT
     Indication: Product used for unknown indication
     Dosage: PRE-FILLED AUTO-INJECTOR, SOLUTION SUBCUTANEOUS, 1 EVERY 1 WEEKS
     Route: 058
  14. BUPROPION HYDROCHLORIDE [Concomitant]
     Active Substance: BUPROPION HYDROCHLORIDE
     Indication: Product used for unknown indication
     Dosage: 1 EVERY 1 DAYS
     Route: 065
  15. CIPRALEX [Concomitant]
     Active Substance: ESCITALOPRAM OXALATE
     Indication: Product used for unknown indication
     Dosage: 1 EVERY 1 DAYS
     Route: 065
  16. DYMISTA [Concomitant]
     Active Substance: AZELASTINE HYDROCHLORIDE\FLUTICASONE PROPIONATE
     Indication: Product used for unknown indication
     Dosage: SPRAY, METERED DOSE, 2 EVERY 1 DAYS
     Route: 065
  17. EPIPEN [Concomitant]
     Active Substance: EPINEPHRINE
     Indication: Product used for unknown indication
     Dosage: 0.3MG/0.3ML AUTO-INJECTOR, SOLUTION INTRAMUSCULAR, AS REQUIRED
     Route: 065
  18. INFLIXIMAB [Concomitant]
     Active Substance: INFLIXIMAB
     Indication: Rheumatoid arthritis
     Dosage: 1 EVERY 8 WEEKS
     Route: 042
  19. OLOPATADINE HYDROCHLORIDE [Concomitant]
     Active Substance: OLOPATADINE HYDROCHLORIDE
     Indication: Product used for unknown indication
     Dosage: 1 EVERY 1 DAYS
     Route: 065

REACTIONS (13)
  - Fatigue [Unknown]
  - Headache [Unknown]
  - Leukopenia [Unknown]
  - Nausea [Unknown]
  - Product use issue [Unknown]
  - Sjogren^s syndrome [Unknown]
  - Swelling [Unknown]
  - Treatment noncompliance [Unknown]
  - Urticaria [Unknown]
  - Urticarial vasculitis [Unknown]
  - Condition aggravated [Unknown]
  - Metabolic surgery [Unknown]
  - Therapeutic product effect decreased [Unknown]
